FAERS Safety Report 11832282 (Version 2)
Quarter: 2016Q1

REPORT INFORMATION
  Report Type: Spontaneous
  Country: CH (occurrence: GB)
  Receive Date: 20151214
  Receipt Date: 20160201
  Transmission Date: 20160525
  Serious: Yes (Other)
  Sender: FDA-Public Use
  Company Number: CH-LPDUSPRD-20150986

PATIENT
  Age: 74 Year
  Sex: Male

DRUGS (17)
  1. TRAMADOL. [Concomitant]
     Active Substance: TRAMADOL
     Dosage: DOSE NOT PROVIDED
     Route: 065
  2. ALLOPURINOL. [Concomitant]
     Active Substance: ALLOPURINOL
     Dosage: DOSE UNKNOWN
     Route: 065
  3. OMEPRAZOLE. [Concomitant]
     Active Substance: OMEPRAZOLE
     Dosage: DOSE NOT PROVIDED
     Route: 065
  4. SYSTANE (HYPROMELLOSE 2910 (4000 MPA.S)) [Concomitant]
     Active Substance: HYPROMELLOSE 2910 (4000 MPA.S)
     Dosage: DOSE NOT PROVIDED
     Route: 065
  5. CEFRADINE [Concomitant]
     Active Substance: CEPHRADINE
     Dosage: DOSE NOT PROVIDED
     Route: 065
  6. METFORMIN [Concomitant]
     Active Substance: METFORMIN HYDROCHLORIDE
     Dosage: DOSE NOT PROVIDED
     Route: 065
  7. TRIMETHOPRIM. [Concomitant]
     Active Substance: TRIMETHOPRIM
     Dosage: DOSE NOT PROVIDED
     Route: 065
  8. CLONAZEPAM. [Concomitant]
     Active Substance: CLONAZEPAM
     Dosage: DOSE NOT PROVIDED
     Route: 065
  9. PARAETAMOL [Concomitant]
     Active Substance: ACETAMINOPHEN
     Dosage: DOSE NOT PROVIDED
     Route: 065
  10. BENDROFLUMETHIAZIDE [Concomitant]
     Active Substance: BENDROFLUMETHIAZIDE
     Dosage: DOSE NOT PROVIDED
     Route: 065
  11. ZOLADEX LA [Concomitant]
     Active Substance: GOSERELIN ACETATE
     Dosage: DOSE NOT PROVIDED
     Route: 065
  12. ATENOLOL. [Concomitant]
     Active Substance: ATENOLOL
     Dosage: DOSE NOT PROVIDED
     Route: 065
  13. SITAGLIPTIN [Concomitant]
     Active Substance: SITAGLIPTIN
     Dosage: DOSE NOT PROVIDED
     Route: 065
  14. ROSUVASTATIN [Concomitant]
     Active Substance: ROSUVASTATIN
     Dosage: DOSE NOT PROVIDED
     Route: 065
  15. FERINJECT [Suspect]
     Active Substance: FERRIC CARBOXYMALTOSE
     Dosage: 1 GM
     Route: 041
     Dates: start: 20151111, end: 20151111
  16. RAMIPRIL. [Concomitant]
     Active Substance: RAMIPRIL
     Dosage: DOSE NOT PROVIDED
     Route: 065
  17. NITROFURANTOIN. [Concomitant]
     Active Substance: NITROFURANTOIN
     Dosage: DOSE NOT PROVIDED
     Route: 065

REACTIONS (1)
  - Allergic oedema [Unknown]

NARRATIVE: CASE EVENT DATE: 20151111
